FAERS Safety Report 6308484-9 (Version None)
Quarter: 2009Q3

REPORT INFORMATION
  Report Type: 
  Country: None (occurrence: None)
  Receive Date: 20090811
  Receipt Date: 20090728
  Transmission Date: 20100115
  Serious: Yes (Other)
  Sender: FDA-Public Use
  Company Number: PAR_03121_2009

PATIENT
  Sex: Male

DRUGS (12)
  1. IBUPROFEN [Suspect]
     Indication: DRUG USE FOR UNKNOWN INDICATION
     Dosage: 1800 MG
  2. RIVAROXABAN [Suspect]
     Indication: THROMBOSIS PROPHYLAXIS
     Dosage: 10 MG
     Dates: start: 20090209, end: 20090210
  3. EMBOLEX [Concomitant]
  4. PANTOZOL /01263202/ [Concomitant]
  5. ANIFLAZYM [Concomitant]
  6. AMARYL [Concomitant]
  7. BISOPROLOL FUMARATE [Concomitant]
  8. BENALAPRIL [Concomitant]
  9. CEFUROXIM /00454602/ [Concomitant]
  10. BEZAFIBRATE [Concomitant]
  11. FENOFIBRATE [Concomitant]
  12. GEMFIBROZIL [Concomitant]

REACTIONS (5)
  - DRUG INTERACTION [None]
  - JOINT EFFUSION [None]
  - POST PROCEDURAL HAEMORRHAGE [None]
  - PROTHROMBIN TIME PROLONGED [None]
  - URETHRAL HAEMORRHAGE [None]
